FAERS Safety Report 13757800 (Version 6)
Quarter: 2018Q2

REPORT INFORMATION
  Report Type: Report from Study
  Country: None (occurrence: US)
  Receive Date: 20170717
  Receipt Date: 20180618
  Transmission Date: 20180711
  Serious: Yes (Other)
  Sender: FDA-Public Use
  Company Number: US-ABBVIE-17K-163-2037686-00

PATIENT
  Sex: Female

DRUGS (1)
  1. HUMIRA [Suspect]
     Active Substance: ADALIMUMAB
     Indication: RHEUMATOID ARTHRITIS
     Route: 058

REACTIONS (10)
  - Poor quality sleep [Unknown]
  - Oral pain [Recovering/Resolving]
  - Osteoarthritis [Not Recovered/Not Resolved]
  - Pharyngeal oedema [Unknown]
  - Paraesthesia [Recovering/Resolving]
  - Ill-defined disorder [Recovering/Resolving]
  - Hypoaesthesia [Recovering/Resolving]
  - Cataract [Unknown]
  - Limb discomfort [Unknown]
  - Acoustic neuroma [Not Recovered/Not Resolved]
